FAERS Safety Report 14678038 (Version 1)
Quarter: 2018Q1

REPORT INFORMATION
  Report Type: Spontaneous
  Country: EG (occurrence: EG)
  Receive Date: 20180326
  Receipt Date: 20180326
  Transmission Date: 20180509
  Serious: Yes (Other)
  Sender: FDA-Public Use
  Company Number: EG-ROCHE-2089522

PATIENT
  Age: 60 Year
  Sex: Female

DRUGS (1)
  1. GAZYVARO [Suspect]
     Active Substance: OBINUTUZUMAB
     Indication: LYMPHOCYTIC LYMPHOMA
     Dosage: DAY 1: 100 MG AND DAY 2: 900 MG
     Route: 042

REACTIONS (1)
  - Hepatitis C virus test positive [Unknown]
